FAERS Safety Report 5234546-3 (Version None)
Quarter: 2007Q1

REPORT INFORMATION
  Report Type: 
  Country: None (occurrence: None)
  Receive Date: 20070209
  Receipt Date: 20070126
  Transmission Date: 20070707
  Serious: Yes (Death)
  Sender: FDA-Public Use
  Company Number: US-ELI_LILLY_AND_COMPANY-US200701005663

PATIENT
  Age: 50 Year
  Sex: Female

DRUGS (3)
  1. STRATTERA [Suspect]
     Dosage: UNK MG, UNK
     Route: 048
  2. WELLBUTRIN [Concomitant]
     Dosage: UNK MG, UNK
  3. NORTRIPTYLINE HCL [Concomitant]
     Dosage: UNK MG, UNK

REACTIONS (2)
  - ARRHYTHMIA [None]
  - DRUG INTERACTION [None]
